FAERS Safety Report 7757884-9 (Version None)
Quarter: 2011Q3

REPORT INFORMATION
  Report Type: 
  Country: None (occurrence: None)
  Receive Date: 20110918
  Receipt Date: 20110906
  Transmission Date: 20111222
  Serious: Yes (Other)
  Sender: FDA-Public Use
  Company Number: US-BRISTOL-MYERS SQUIBB COMPANY-16065153

PATIENT

DRUGS (2)
  1. CARMUSTINE [Suspect]
     Indication: BRAIN NEOPLASM MALIGNANT
     Dosage: INTRACAROTID
  2. CISPLATIN [Suspect]
     Indication: BRAIN NEOPLASM MALIGNANT

REACTIONS (1)
  - LEUKOENCEPHALOPATHY [None]
